FAERS Safety Report 5130680-7 (Version None)
Quarter: 2006Q4

REPORT INFORMATION
  Report Type: 
  Country: None (occurrence: None)
  Receive Date: 20061019
  Receipt Date: 20061009
  Transmission Date: 20070319
  Serious: Yes (Hospitalization)
  Sender: FDA-Public Use
  Company Number: AT-JNJFOC-20061002521

PATIENT

DRUGS (10)
  1. HALDOL [Suspect]
     Indication: DRUG USE FOR UNKNOWN INDICATION
     Route: 065
  2. LEPONEX [Interacting]
  3. LEPONEX [Interacting]
     Indication: SCHIZOPHRENIA
  4. ABILIFY [Interacting]
     Indication: DRUG USE FOR UNKNOWN INDICATION
  5. SEROQUEL [Interacting]
     Indication: DRUG USE FOR UNKNOWN INDICATION
     Dosage: 75 MG UP TO 1200 MG
  6. OXAZEPAM [Concomitant]
  7. LOVENOX [Concomitant]
  8. LEPONEX [Concomitant]
  9. LEPONEX [Concomitant]
  10. DOMINAL FORTE [Concomitant]

REACTIONS (6)
  - ALANINE AMINOTRANSFERASE DECREASED [None]
  - ASPARTATE AMINOTRANSFERASE INCREASED [None]
  - DRUG INTERACTION [None]
  - GAMMA-GLUTAMYLTRANSFERASE INCREASED [None]
  - HEPATIC ENZYME INCREASED [None]
  - PSYCHOTIC DISORDER [None]
